FAERS Safety Report 7834030-4 (Version None)
Quarter: 2011Q4

REPORT INFORMATION
  Report Type: 
  Country: None (occurrence: None)
  Receive Date: 20111024
  Receipt Date: 20111013
  Transmission Date: 20120403
  Serious: Yes (Hospitalization)
  Sender: FDA-Public Use
  Company Number: US-ASTRAZENECA-2010SE18635

PATIENT
  Age: 58 Year
  Sex: Male
  Weight: 77.1 kg

DRUGS (30)
  1. LITHIUM CITRATE [Concomitant]
     Route: 048
  2. PROPRANOLOL [Concomitant]
     Indication: TREMOR
     Route: 048
  3. SEROQUEL [Suspect]
     Route: 048
     Dates: end: 20100901
  4. SEROQUEL [Suspect]
     Route: 048
     Dates: start: 20110201
  5. SEROQUEL [Suspect]
     Route: 048
     Dates: start: 20110201
  6. LITHIUM CITRATE [Concomitant]
     Indication: BIPOLAR DISORDER
     Route: 048
  7. SEROQUEL [Suspect]
     Route: 048
     Dates: start: 20100401
  8. SEROQUEL [Suspect]
     Route: 048
     Dates: end: 20100901
  9. SEROQUEL [Suspect]
     Dosage: HALF OF A 300 MG TABLET AT NIGHT
     Route: 048
     Dates: start: 20100901
  10. SEROQUEL [Suspect]
     Dosage: HALF OF A 300 MG TABLET AT NIGHT
     Route: 048
     Dates: start: 20100901
  11. SEROQUEL [Suspect]
     Route: 048
     Dates: start: 20110201
  12. ABILIFY [Concomitant]
     Indication: ANTIDEPRESSANT THERAPY
     Dosage: TWO TIMES A DAY
     Route: 048
  13. SEROQUEL [Suspect]
     Indication: MOOD SWINGS
     Route: 048
     Dates: start: 20060101, end: 20100401
  14. SEROQUEL [Suspect]
     Dosage: HALF OF A 300 MG TABLET AT NIGHT
     Route: 048
     Dates: start: 20100901
  15. ABILIFY [Concomitant]
     Route: 048
  16. SEROQUEL [Suspect]
     Dosage: HALF OF A 300 MG TABLET AT NIGHT
     Route: 048
     Dates: start: 20100901
  17. ADDERALL 5 [Concomitant]
     Indication: ATTENTION DEFICIT/HYPERACTIVITY DISORDER
     Route: 048
  18. SEROQUEL [Suspect]
     Indication: BIPOLAR DISORDER
     Route: 048
     Dates: start: 20060101, end: 20100401
  19. SEROQUEL [Suspect]
     Indication: BIPOLAR I DISORDER
     Route: 048
     Dates: start: 20060101, end: 20100401
  20. SEROQUEL [Suspect]
     Route: 048
     Dates: end: 20100901
  21. LITHIUM CITRATE [Concomitant]
     Indication: MOOD SWINGS
     Route: 048
  22. KLONOPIN [Concomitant]
     Indication: ANXIETY
     Route: 048
  23. CLONAZEPAM [Concomitant]
     Indication: ANXIETY
     Route: 048
  24. SEROQUEL [Suspect]
     Indication: SLEEP DISORDER
     Route: 048
     Dates: start: 20060101, end: 20100401
  25. SEROQUEL [Suspect]
     Route: 048
     Dates: start: 20100401
  26. SEROQUEL [Suspect]
     Route: 048
     Dates: start: 20100401
  27. SEROQUEL [Suspect]
     Route: 048
     Dates: start: 20100401
  28. SEROQUEL [Suspect]
     Route: 048
     Dates: end: 20100901
  29. SEROQUEL [Suspect]
     Route: 048
     Dates: start: 20110201
  30. LITHIUM CITRATE [Concomitant]
     Route: 048

REACTIONS (18)
  - AGITATION [None]
  - INSOMNIA [None]
  - DISTURBANCE IN ATTENTION [None]
  - INCORRECT DOSE ADMINISTERED [None]
  - HYPERHIDROSIS [None]
  - MOOD SWINGS [None]
  - CHILLS [None]
  - HUNGER [None]
  - DEPRESSION [None]
  - TREMOR [None]
  - WRONG TECHNIQUE IN DRUG USAGE PROCESS [None]
  - DRUG WITHDRAWAL SYNDROME [None]
  - MANIA [None]
  - DRUG DOSE OMISSION [None]
  - HEADACHE [None]
  - ANGER [None]
  - CRYING [None]
  - NAUSEA [None]
